FAERS Safety Report 7548548-5 (Version None)
Quarter: 2011Q2

REPORT INFORMATION
  Report Type: 
  Country: None (occurrence: None)
  Receive Date: 20110615
  Receipt Date: 20110609
  Transmission Date: 20111010
  Serious: Yes (Other)
  Sender: FDA-Public Use
  Company Number: US-SANOFI-AVENTIS-2011SA029026

PATIENT
  Age: 76 Year
  Sex: Female
  Weight: 79 kg

DRUGS (17)
  1. ALL OTHER THERAPEUTIC PRODUCTS [Concomitant]
  2. BENADRYL [Concomitant]
  3. LORAZEPAM [Concomitant]
     Indication: ANXIETY
  4. ATENOLOL [Concomitant]
  5. OMEPRAZOLE [Concomitant]
     Indication: GASTRIC DISORDER
  6. LANTUS [Suspect]
     Indication: TYPE 2 DIABETES MELLITUS
     Dosage: DOSE:55 UNIT(S)
     Route: 058
     Dates: start: 20090101
  7. PLAVIX [Concomitant]
  8. LEVOTHYROXINE SODIUM [Concomitant]
     Indication: THYROID DISORDER
  9. LANTUS [Suspect]
     Dosage: DOSE:55 UNIT(S)
     Route: 058
     Dates: start: 20090101
  10. HUMALOG [Concomitant]
     Dosage: SLIDING SCALE DOSE:7 UNIT(S)
     Route: 058
  11. VICODIN [Concomitant]
     Indication: PAIN
     Dosage: ^75/750MG^
  12. FLUOXETINE HCL [Concomitant]
     Indication: DEPRESSION
  13. SOLOSTAR [Suspect]
     Indication: TYPE 2 DIABETES MELLITUS
     Dates: start: 20090101
  14. ASCORBIC ACID [Concomitant]
  15. ARANESP [Concomitant]
  16. POLY-IRON [Concomitant]
  17. SIMVASTATIN [Concomitant]

REACTIONS (4)
  - HEADACHE [None]
  - INTRACRANIAL ANEURYSM [None]
  - BLOOD GLUCOSE INCREASED [None]
  - BLOOD GLUCOSE DECREASED [None]
